FAERS Safety Report 7656411-4 (Version None)
Quarter: 2011Q3

REPORT INFORMATION
  Report Type: 
  Country: None (occurrence: None)
  Receive Date: 20110804
  Receipt Date: 20110624
  Transmission Date: 20111222
  Serious: Yes (Life-Threatening, Hospitalization, Other)
  Sender: FDA-Public Use
  Company Number: IN-GLAXOSMITHKLINE-B0729086A

PATIENT
  Sex: Male
  Weight: 65 kg

DRUGS (3)
  1. CAPECITABINE [Suspect]
     Indication: GASTRIC CANCER
     Route: 048
     Dates: start: 20101124
  2. LAPATINIB [Suspect]
     Indication: GASTRIC CANCER
     Dosage: 1250MG PER DAY
     Route: 048
     Dates: start: 20101124
  3. OXALIPLATIN [Suspect]
     Indication: GASTRIC CANCER
     Route: 042
     Dates: start: 20101124

REACTIONS (3)
  - PYREXIA [None]
  - ANAEMIA [None]
  - MELAENA [None]
